FAERS Safety Report 22102341 (Version 2)
Quarter: 2024Q3

REPORT INFORMATION
  Report Type: Spontaneous
  Country: BR (occurrence: BR)
  Receive Date: 20230316
  Receipt Date: 20240920
  Transmission Date: 20241017
  Serious: Yes (Disabling)
  Sender: CELLTRION
  Company Number: BR-CELLTRION INC.-2023BR005265

PATIENT

DRUGS (6)
  1. INFLIXIMAB [Suspect]
     Active Substance: INFLIXIMAB
     Indication: Rheumatoid arthritis
     Dosage: 4 AMPOULES EVERY 2 MONTHS
     Route: 042
  2. LOSARTAN [Concomitant]
     Active Substance: LOSARTAN\LOSARTAN POTASSIUM
     Indication: Hypertension
     Dosage: 1 PILL A DAY STARTED 5 YEARS AGO
     Route: 048
  3. HYDROCHLOROTHIAZIDE [Concomitant]
     Active Substance: HYDROCHLOROTHIAZIDE
     Indication: Hypertension
     Dosage: 1 PILL A DAY STARTED 8 YEARS AGO
     Route: 048
  4. LEFLUNOMIDE [Concomitant]
     Active Substance: LEFLUNOMIDE
     Indication: Rheumatoid arthritis
     Dosage: 1 PILL A DAY STARTED 7 YEARS AGO
     Route: 048
  5. PREDNISONE [Concomitant]
     Active Substance: PREDNISONE
     Indication: Rheumatoid arthritis
     Dosage: 2 PILLS A DAY (WHEN LEFLUNOMIDE IS IN SHORT SUPPLY)
     Route: 048
  6. OMEPRAZOLE [Concomitant]
     Active Substance: OMEPRAZOLE
     Dosage: 1 PILL A DAY
     Route: 048

REACTIONS (4)
  - Rheumatic disorder [Recovering/Resolving]
  - Abscess [Recovering/Resolving]
  - Intentional dose omission [Unknown]
  - Intentional product use issue [Unknown]
